FAERS Safety Report 10388609 (Version 3)
Quarter: 2014Q3

REPORT INFORMATION
  Report Type: Spontaneous
  Country: KZ (occurrence: KZ)
  Receive Date: 20140815
  Receipt Date: 20140901
  Transmission Date: 20150326
  Serious: Yes (Death, Hospitalization)
  Sender: FDA-Public Use
  Company Number: KZ-MERCK-1408KAZ008721

PATIENT
  Age: 43 Year
  Sex: Female

DRUGS (1)
  1. PEGINTRON [Suspect]
     Active Substance: PEGINTERFERON ALFA-2B
     Indication: CHRONIC HEPATITIS C
     Dosage: UNK
     Dates: start: 201403, end: 201407

REACTIONS (2)
  - Death [Fatal]
  - Hepatitis C [Unknown]

NARRATIVE: CASE EVENT DATE: 2014
